FAERS Safety Report 10089157 (Version 3)
Quarter: 2019Q4

REPORT INFORMATION
  Report Type: Report from Study
  Country: US (occurrence: US)
  Receive Date: 20140421
  Receipt Date: 20191231
  Transmission Date: 20200122
  Serious: Yes (Hospitalization, Other)
  Sender: FDA-Public Use
  Company Number: US-ROCHE-1379610

PATIENT
  Sex: Female
  Weight: 43.9 kg

DRUGS (16)
  1. NUTROPIN AQ [Suspect]
     Active Substance: SOMATROPIN
     Route: 058
  2. ONDANSETRON [Concomitant]
     Active Substance: ONDANSETRON
     Route: 048
  3. FLONASE [Concomitant]
     Active Substance: FLUTICASONE PROPIONATE
     Dosage: 2 SPRAYS EACH NOSTRIL DOSE 16 GRAM
     Route: 045
  4. FOLVITE [FOLIC ACID] [Concomitant]
     Route: 048
  5. PREMARIN [Concomitant]
     Active Substance: ESTROGENS, CONJUGATED
  6. NUTROPIN AQ [Suspect]
     Active Substance: SOMATROPIN
     Indication: TURNER^S SYNDROME
     Route: 058
  7. MOTRIN [Concomitant]
     Active Substance: IBUPROFEN
     Route: 048
  8. HUMIRA [Concomitant]
     Active Substance: ADALIMUMAB
  9. METHOTREXATE. [Concomitant]
     Active Substance: METHOTREXATE
     Dosage: 25 MG/ML INJECTION
     Route: 065
  10. XYLOCAINE [Concomitant]
     Active Substance: LIDOCAINE HYDROCHLORIDE
     Dosage: WITH HUMIRA 4ML AND NJECT UNDER SKIN
     Route: 065
  11. RANITIDINE. [Concomitant]
     Active Substance: RANITIDINE
     Route: 048
  12. NAPROXEN. [Concomitant]
     Active Substance: NAPROXEN
     Route: 048
  13. NUTROPIN AQ [Suspect]
     Active Substance: SOMATROPIN
     Route: 058
  14. NORDITROPIN [Concomitant]
     Active Substance: SOMATROPIN
     Route: 058
  15. NUTROPIN AQ [Suspect]
     Active Substance: SOMATROPIN
     Route: 058
  16. ZOFRAN [Concomitant]
     Active Substance: ONDANSETRON HYDROCHLORIDE

REACTIONS (22)
  - Nausea [Unknown]
  - Ear tube insertion [Unknown]
  - Developmental delay [Unknown]
  - Deafness [Unknown]
  - Rhinitis [Unknown]
  - Selective IgA immunodeficiency [Unknown]
  - Gastrooesophageal reflux disease [Unknown]
  - Sinusitis [Unknown]
  - Pain in extremity [Unknown]
  - Restless legs syndrome [Unknown]
  - Vomiting [Unknown]
  - Fatigue [Unknown]
  - Dysphagia [Unknown]
  - Speech disorder [Unknown]
  - Muscular weakness [Unknown]
  - Hernia [Unknown]
  - Aorta coarctation repair [Unknown]
  - Ear infection [Unknown]
  - Juvenile idiopathic arthritis [Unknown]
  - Lymphoedema [Unknown]
  - Vulvovaginal adhesion [Unknown]
  - Osteopenia [Unknown]

NARRATIVE: CASE EVENT DATE: 2013
